FAERS Safety Report 12072468 (Version 3)
Quarter: 2017Q2

REPORT INFORMATION
  Report Type: Spontaneous
  Country: US (occurrence: US)
  Receive Date: 20160212
  Receipt Date: 20170519
  Transmission Date: 20170829
  Serious: Yes (Other)
  Sender: FDA-Public Use
  Company Number: US-AMGEN-USASP2016015860

PATIENT
  Age: 67 Year
  Sex: Female

DRUGS (2)
  1. LIPITOR [Concomitant]
     Active Substance: ATORVASTATIN CALCIUM
     Dosage: UNK
  2. PROLIA [Suspect]
     Active Substance: DENOSUMAB
     Indication: OSTEOPOROSIS POSTMENOPAUSAL
     Dosage: UNK
     Route: 065
     Dates: start: 201506

REACTIONS (34)
  - Mobility decreased [Unknown]
  - Hyponatraemia [Unknown]
  - Dysstasia [Unknown]
  - Slow speech [Unknown]
  - Arthralgia [Unknown]
  - Muscle spasms [Unknown]
  - Drug interaction [Unknown]
  - Myalgia [Unknown]
  - Drug hypersensitivity [Unknown]
  - Cardiac ablation [Unknown]
  - Hypotension [Unknown]
  - Rehabilitation therapy [Unknown]
  - Dysphagia [Unknown]
  - Impaired quality of life [Unknown]
  - Emergency care [Unknown]
  - Sleep disorder [Unknown]
  - Back pain [Unknown]
  - Abdominal pain [Unknown]
  - Groin pain [Unknown]
  - Pain in jaw [Unknown]
  - Endocrine disorder [Unknown]
  - Electrolyte imbalance [Unknown]
  - Asthenia [Unknown]
  - Throat tightness [Unknown]
  - Blood sodium decreased [Unknown]
  - Feeling abnormal [Unknown]
  - Blood calcium decreased [Unknown]
  - Abasia [Unknown]
  - Myocardial infarction [Unknown]
  - Heart rate increased [Unknown]
  - Compression fracture [Unknown]
  - Spinal fracture [Unknown]
  - Dyspnoea [Unknown]
  - Pain in extremity [Unknown]

NARRATIVE: CASE EVENT DATE: 201510
